FAERS Safety Report 9696634 (Version 2)
Quarter: 2013Q4

REPORT INFORMATION
  Report Type: Spontaneous
  Country: IT (occurrence: IT)
  Receive Date: 20131119
  Receipt Date: 20131128
  Transmission Date: 20140711
  Serious: Yes (Other)
  Sender: FDA-Public Use
  Company Number: IT-ROCHE-1300370

PATIENT
  Age: 66 Year
  Sex: Female
  Weight: 70 kg

DRUGS (8)
  1. AVASTIN [Suspect]
     Indication: COLON CANCER
     Route: 042
     Dates: start: 20130514, end: 20130529
  2. IRINOTECAN [Suspect]
     Indication: COLON CANCER
     Route: 042
     Dates: start: 20130514, end: 20130529
  3. FLUOROURACILE TEVA [Suspect]
     Indication: COLON CANCER
     Route: 040
     Dates: start: 20130514
  4. FLUOROURACILE TEVA [Suspect]
     Route: 042
     Dates: end: 20130529
  5. RANIDIL [Concomitant]
     Route: 040
     Dates: start: 20130514, end: 20130529
  6. SOLDESAM [Concomitant]
     Route: 040
     Dates: start: 20130514, end: 20130529
  7. ONDANSETRON HIKMA [Concomitant]
     Route: 042
     Dates: start: 20130514, end: 20130529
  8. LEVOFOLENE [Concomitant]
     Route: 042
     Dates: start: 20130514, end: 20130529

REACTIONS (8)
  - Abdominal pain [Unknown]
  - Asthenia [Unknown]
  - Dysphonia [Unknown]
  - Nausea [Unknown]
  - Vomiting [Unknown]
  - Anorectal discomfort [Unknown]
  - Skin discolouration [Unknown]
  - Diarrhoea [Unknown]
